FAERS Safety Report 6519251-5 (Version None)
Quarter: 2009Q4

REPORT INFORMATION
  Report Type: 
  Country: None (occurrence: None)
  Receive Date: 20091228
  Receipt Date: 20091217
  Transmission Date: 20100525
  Serious: Yes (Hospitalization)
  Sender: FDA-Public Use
  Company Number: PHEH2009US18014

PATIENT
  Sex: Male

DRUGS (2)
  1. EXJADE [Suspect]
     Indication: IRON OVERLOAD
     Dosage: 500 MG, BID
     Route: 048
     Dates: start: 20090908
  2. EXJADE [Suspect]
     Indication: LYMPHATIC DISORDER

REACTIONS (1)
  - PNEUMONIA [None]
